FAERS Safety Report 26134720 (Version 1)
Quarter: 2025Q4

REPORT INFORMATION
  Report Type: Spontaneous
  Country: US (occurrence: None)
  Receive Date: 20251208
  Receipt Date: 20251208
  Transmission Date: 20260117
  Serious: No
  Sender: FDA-CTU
  Company Number: None

PATIENT

DRUGS (3)
  1. ATROPINE [Suspect]
     Active Substance: ATROPINE
     Route: 031
  2. FLUOROURACIL [Suspect]
     Active Substance: FLUOROURACIL
     Route: 061
  3. SALICYLIC ACID [Suspect]
     Active Substance: SALICYLIC ACID

REACTIONS (4)
  - Manufacturing product shipping issue [None]
  - Wrong patient received product [None]
  - Product distribution issue [None]
  - Product monitoring error [None]
